FAERS Safety Report 18717601 (Version 1)
Quarter: 2021Q1

REPORT INFORMATION
  Report Type: Spontaneous
  Country: NL (occurrence: NL)
  Receive Date: 20210108
  Receipt Date: 20210108
  Transmission Date: 20210419
  Serious: Yes (Hospitalization)
  Sender: FDA-Public Use
  Company Number: NL-TEVA-2021-NL-1866144

PATIENT
  Age: 63 Year
  Sex: Male
  Weight: 91.2 kg

DRUGS (8)
  1. PANTOPRAZOL TABLET MSR 40MG / BRAND NAME NOT SPECIFIED [Concomitant]
     Active Substance: PANTOPRAZOLE
     Dosage: 40 MG (MILLIGRAM),  THERAPY START DATE AND END DATE: ASKED BUT UNKNOWN
  2. PERINDOPRIL TABLET 4MG (ERBUMINE) / BRAND NAME NOT SPECIFIED [Concomitant]
     Dosage: 6 MILLIGRAM DAILY; 6 MG, THERAPY START DATE AND END DATE: ASKED BUT UNKNOWN
  3. COLCHICINE TABLET 0,5MG / BRAND NAME NOT SPECIFIED [Concomitant]
     Active Substance: COLCHICINE
     Dosage: 0.5 MG (MILLIGRAM),  THERAPY START DATE AND END DATE: ASKED BUT UNKNOWN
  4. METOPROLOL TABLET MGA  25MG (SUCCINAAT) / BRAND NAME NOT SPECIFIED [Concomitant]
     Dosage: 25 MG (MILLIGRAM),  THERAPY START DATE AND END DATE: ASKED BUT UNKNOWN
  5. ROSUVASTATINE TABLET  5MG / BRAND NAME NOT SPECIFIED [Concomitant]
     Dosage: 5 MG (MILLIGRAM),  THERAPY START DATE AND END DATE: ASKED BUT UNKNOWN
  6. ALLOPURINOL TABLET 300MG / BRAND NAME NOT SPECIFIED [Suspect]
     Active Substance: ALLOPURINOL
     Indication: ARTHRITIS
     Dosage: 300 MILLIGRAM DAILY;
     Dates: start: 20200428, end: 20201219
  7. ACETYLSALICYLZUUR TABLET  80MG / BRAND NAME NOT SPECIFIED [Concomitant]
     Active Substance: ASPIRIN
     Dosage: 80 MG (MILLIGRAM),  THERAPY START DATE AND END DATE: ASKED BUT UNKNOWN
  8. DICLOFENAC?KALIUM TABLET OMHULD 50MG / BRAND NAME NOT SPECIFIED [Concomitant]
     Dosage: 50 MG (MILLIGRAM),  THERAPY START DATE AND END DATE: ASKED BUT UNKNOWN

REACTIONS (1)
  - Hepatitis acute [Recovering/Resolving]

NARRATIVE: CASE EVENT DATE: 20201218
